FAERS Safety Report 6821765-5 (Version None)
Quarter: 2010Q3

REPORT INFORMATION
  Report Type: 
  Country: None (occurrence: None)
  Receive Date: 20100702
  Receipt Date: 20100616
  Transmission Date: 20110219
  Serious: Yes (Disabling)
  Sender: FDA-Public Use
  Company Number: GB-DEXPHARM-20100872

PATIENT
  Age: 62 Year
  Sex: Male

DRUGS (2)
  1. OMEPRAZOLE [Suspect]
     Dosage: 20 MG MILLIGRAM(S), ORAL
     Route: 048
     Dates: start: 20091005, end: 20100601
  2. GABAPENTIN [Suspect]
     Indication: NEURALGIA
     Dosage: 300MG MILLIGRAM(S), ORAL
     Route: 048
     Dates: start: 20100523, end: 20100601

REACTIONS (3)
  - DRUG INTERACTION [None]
  - MUSCULAR WEAKNESS [None]
  - MYALGIA [None]
